FAERS Safety Report 13265832 (Version 1)
Quarter: 2017Q1

REPORT INFORMATION
  Report Type: Report from Study
  Country: NL (occurrence: NL)
  Receive Date: 20170223
  Receipt Date: 20170223
  Transmission Date: 20170428
  Serious: Yes (Hospitalization, Other)
  Sender: FDA-Public Use
  Company Number: PHHY2017NL001245

PATIENT
  Age: 63 Year
  Sex: Female

DRUGS (6)
  1. SANDOSTATIN LAR DEPOT [Suspect]
     Active Substance: OCTREOTIDE ACETATE
     Dosage: 30 MG/2 ML (1X PER 3 WEEKS)
     Route: 030
     Dates: start: 20170215
  2. SANDOSTATIN LAR DEPOT [Suspect]
     Active Substance: OCTREOTIDE ACETATE
     Dosage: 30 MG/2 ML (1X PER 3 WEEKS)
     Route: 030
     Dates: start: 20170125
  3. SANDOSTATIN LAR DEPOT [Suspect]
     Active Substance: OCTREOTIDE ACETATE
     Dosage: 30 MG/2 ML (1X PER 3 WEEKS)
     Route: 030
     Dates: start: 20140128
  4. SANDOSTATIN LAR DEPOT [Suspect]
     Active Substance: OCTREOTIDE ACETATE
     Dosage: 30 MG/2 ML (1X PER 3 WEEKS)
     Route: 030
     Dates: start: 20170104
  5. SANDOSTATIN LAR DEPOT [Suspect]
     Active Substance: OCTREOTIDE ACETATE
     Indication: NEUROENDOCRINE TUMOUR
     Dosage: 30 MG/2 ML (1X PER 3 WEEKS)
     Route: 030
  6. SANDOSTATIN LAR DEPOT [Suspect]
     Active Substance: OCTREOTIDE ACETATE
     Dosage: 30 MG/2 ML (1X PER 3 WEEKS)
     Route: 030
     Dates: start: 20161213

REACTIONS (5)
  - Uterine polyp [Recovered/Resolved]
  - Metastases to ovary [Not Recovered/Not Resolved]
  - Uterine polyp [Unknown]
  - Inappropriate schedule of drug administration [Unknown]
  - Arrhythmia [Not Recovered/Not Resolved]

NARRATIVE: CASE EVENT DATE: 20161228
